FAERS Safety Report 7793665-8 (Version None)
Quarter: 2011Q4

REPORT INFORMATION
  Report Type: 
  Country: None (occurrence: None)
  Receive Date: 20111003
  Receipt Date: 20110225
  Transmission Date: 20120403
  Serious: No
  Sender: FDA-Public Use
  Company Number: US-BAYER-2011-064298

PATIENT
  Age: 73 Year
  Sex: Female
  Weight: 71 kg

DRUGS (3)
  1. ALEVE (CAPLET) [Suspect]
     Dosage: UNK UNK, PRN
     Route: 048
  2. ALKA-SELTZER PLUS COLD (UNKNOWN FORMULATION) [Interacting]
     Dosage: UNK
     Route: 048
     Dates: start: 20110101, end: 20110224
  3. MOTRIN [Concomitant]
     Dosage: UNK

REACTIONS (1)
  - DRUG INEFFECTIVE [None]
